FAERS Safety Report 9266344 (Version 1)
Quarter: 2013Q2

REPORT INFORMATION
  Report Type: Spontaneous
  Country: US (occurrence: US)
  Receive Date: 20130502
  Receipt Date: 20130502
  Transmission Date: 20140414
  Serious: Yes (Other)
  Sender: FDA-Public Use
  Company Number: US-ACCORD-017425

PATIENT
  Sex: Male

DRUGS (2)
  1. DIAZEPAM [Suspect]
     Indication: PRODUCT USED FOR UNKNOWN INDICATION
     Dosage: YELLOW ROUND TABLETS WITH THE IMPRINTS?^TEVA^ AND 3926
  2. CLONAZEPAM [Suspect]
     Indication: PRODUCT USED FOR UNKNOWN INDICATION
     Dosage: AT BEDTIME
     Dates: start: 201212, end: 20130226

REACTIONS (5)
  - Dysgeusia [Unknown]
  - Abdominal pain upper [Recovered/Resolved]
  - Disorientation [Recovered/Resolved]
  - Migraine with aura [Recovered/Resolved]
  - Rash [Not Recovered/Not Resolved]
